FAERS Safety Report 15498993 (Version 1)
Quarter: 2018Q4

REPORT INFORMATION
  Report Type: Spontaneous
  Country: US (occurrence: US)
  Receive Date: 20181015
  Receipt Date: 20181015
  Transmission Date: 20190205
  Serious: Yes (Hospitalization)
  Sender: FDA-Public Use
  Company Number: US-APOTEX-2018AP022638

PATIENT
  Age: 73 Year
  Sex: Male

DRUGS (8)
  1. RISPERIDONE. [Suspect]
     Active Substance: RISPERIDONE
     Indication: MANIA
     Dosage: 6 MG, PER DAY
     Route: 065
  2. OMEGA-3 ACIDS [Suspect]
     Active Substance: OMEGA-3 FATTY ACIDS
     Indication: MEMORY IMPAIRMENT
     Dosage: 10 TO 15 G/DAY
     Route: 065
  3. VITAMIN D3 [Concomitant]
     Active Substance: CHOLECALCIFEROL
     Indication: NUTRITIONAL SUPPLEMENTATION
     Dosage: 2000 U/DAY
     Route: 065
  4. OMEGA-3 ACIDS [Suspect]
     Active Substance: OMEGA-3 FATTY ACIDS
     Indication: PAIN
  5. OMEGA-3 ACIDS [Suspect]
     Active Substance: OMEGA-3 FATTY ACIDS
     Indication: DEPRESSION
  6. NORTRIPTYLINE [Suspect]
     Active Substance: NORTRIPTYLINE
     Indication: MAJOR DEPRESSION
     Dosage: 25 MG, PER DAY
     Route: 065
  7. BUPRENORPHINE. [Suspect]
     Active Substance: BUPRENORPHINE
     Indication: PAIN
     Dosage: 2 MG, QID
     Route: 060
  8. CITALOPRAM [Suspect]
     Active Substance: CITALOPRAM HYDROBROMIDE
     Indication: MAJOR DEPRESSION
     Dosage: 40 MG, PER DAY
     Route: 065

REACTIONS (3)
  - Drug effect incomplete [Unknown]
  - Mania [Recovering/Resolving]
  - Treatment noncompliance [Unknown]
